FAERS Safety Report 10917012 (Version 2)
Quarter: 2015Q2

REPORT INFORMATION
  Report Type: Spontaneous
  Country: US (occurrence: US)
  Receive Date: 20150316
  Receipt Date: 20150526
  Transmission Date: 20150821
  Serious: Yes (Hospitalization)
  Sender: FDA-Public Use
  Company Number: US-PFIZER INC-2015089459

PATIENT
  Age: 54 Year
  Sex: Female
  Weight: 41 kg

DRUGS (8)
  1. SILDENAFIL. [Concomitant]
     Active Substance: SILDENAFIL
     Dosage: 20 MG, 3X/DAY
  2. POTASSIUM CL ER [Concomitant]
     Dosage: 10 MG, 1X/DAY
  3. SYNTHROID [Concomitant]
     Active Substance: LEVOTHYROXINE SODIUM
     Indication: THYROID DISORDER
     Dosage: 0.025 MG, 1X/DAY
  4. ALDACTONE [Concomitant]
     Active Substance: SPIRONOLACTONE
     Dosage: 25 MG, 1X/DAY
  5. PROCARDIA XL [Suspect]
     Active Substance: NIFEDIPINE
     Indication: HYPERTENSION
     Dosage: 90 MG, DAILY (60MG MORNING AND 30MG NIGHT
     Route: 048
     Dates: start: 2014
  6. COUMADIN [Concomitant]
     Active Substance: WARFARIN SODIUM
     Dosage: 2.5 MG, 1X/DAY
  7. LASIX [Concomitant]
     Active Substance: FUROSEMIDE
     Dosage: 40 MG, 1X/DAY
  8. MAGNESIUM OXIDE. [Concomitant]
     Active Substance: MAGNESIUM OXIDE
     Dosage: 400 MG, 2X/DAY

REACTIONS (3)
  - Pulmonary hypertension [Not Recovered/Not Resolved]
  - Blood pressure inadequately controlled [Not Recovered/Not Resolved]
  - Cardiac failure congestive [Unknown]

NARRATIVE: CASE EVENT DATE: 20150223
